FAERS Safety Report 9477096 (Version 1)
Quarter: 2013Q3

REPORT INFORMATION
  Report Type: Spontaneous
  Country: FR (occurrence: FR)
  Receive Date: 20130826
  Receipt Date: 20130826
  Transmission Date: 20140515
  Serious: Yes (Hospitalization)
  Sender: FDA-Public Use
  Company Number: FR-MYLANLABS-2013S1017991

PATIENT
  Age: 55 Year
  Sex: Female

DRUGS (15)
  1. CISPLATINE [Suspect]
     Indication: SMALL CELL LUNG CANCER
     Route: 042
     Dates: start: 20130118, end: 20130120
  2. CISPLATINE [Suspect]
     Indication: SMALL CELL LUNG CANCER
     Route: 042
     Dates: start: 20130213, end: 20130215
  3. CISPLATINE [Suspect]
     Indication: SMALL CELL LUNG CANCER
     Route: 042
     Dates: start: 20130313, end: 20130315
  4. ETOPOSIDE [Suspect]
     Indication: SMALL CELL LUNG CANCER
     Route: 042
     Dates: start: 20130118, end: 20130120
  5. ETOPOSIDE [Suspect]
     Indication: SMALL CELL LUNG CANCER
     Route: 042
     Dates: start: 20130213, end: 20130215
  6. ETOPOSIDE [Suspect]
     Indication: SMALL CELL LUNG CANCER
     Route: 042
     Dates: start: 20130313, end: 20130315
  7. METHYLPREDNISOLONE [Suspect]
     Indication: PREMEDICATION
     Route: 042
     Dates: start: 20130118
  8. METHYLPREDNISOLONE [Suspect]
     Indication: PREMEDICATION
     Route: 042
     Dates: start: 20130213
  9. METHYLPREDNISOLONE [Suspect]
     Indication: PREMEDICATION
     Route: 042
     Dates: start: 20130313
  10. TAREG [Concomitant]
  11. CELECTOL [Concomitant]
  12. LEXOMIL [Concomitant]
  13. SOLUPRED [Concomitant]
  14. INNOHEP [Concomitant]
  15. INEXIUM [Concomitant]

REACTIONS (1)
  - Renal failure acute [Recovering/Resolving]
